FAERS Safety Report 9279364 (Version 3)
Quarter: 2013Q2

REPORT INFORMATION
  Report Type: Spontaneous
  Country: GB (occurrence: GB)
  Receive Date: 20130508
  Receipt Date: 20130614
  Transmission Date: 20140414
  Serious: Yes (Other)
  Sender: FDA-Public Use
  Company Number: GB-PFIZER INC-2013138173

PATIENT
  Age: 84 Year
  Sex: Male

DRUGS (5)
  1. XALATAN [Suspect]
     Indication: GLAUCOMA
     Dosage: 1 DROP DAILY
     Route: 050
     Dates: start: 20130401
  2. TAMSULOSIN [Concomitant]
     Dosage: 400 UG, 1X/DAY
  3. MEBEVERINE [Concomitant]
     Dosage: 135 MG, 3X/DAY
  4. CO-AMILOFRUSE [Concomitant]
     Dosage: 5/40MG. TAKEN IN THE MORNING.
  5. INDAPAMIDE [Concomitant]
     Dosage: 2.5 MG, TAKEN IN THE MORNING.

REACTIONS (4)
  - Eye irritation [Unknown]
  - Asthenopia [Unknown]
  - Excessive eye blinking [Unknown]
  - Product formulation issue [Unknown]
